FAERS Safety Report 9674563 (Version 1)
Quarter: 2013Q4

REPORT INFORMATION
  Report Type: Spontaneous
  Country: US (occurrence: US)
  Receive Date: 20131107
  Receipt Date: 20131107
  Transmission Date: 20140711
  Serious: Yes (Hospitalization)
  Sender: FDA-Public Use
  Company Number: US-DRREDDYS-USA/USA/13/0035359

PATIENT
  Age: 2 Year
  Sex: Male

DRUGS (1)
  1. GUANFACINE HYDROCHLORIDE [Suspect]
     Indication: PRODUCT USED FOR UNKNOWN INDICATION
     Route: 048

REACTIONS (6)
  - Somnolence [Recovering/Resolving]
  - Sinus bradycardia [Recovered/Resolved]
  - Sinus arrhythmia [Recovered/Resolved]
  - Hypertension [Recovered/Resolved]
  - Miosis [Unknown]
  - Accidental overdose [Unknown]
